FAERS Safety Report 9123629 (Version 1)
Quarter: 2013Q1

REPORT INFORMATION
  Report Type: Spontaneous
  Country: US (occurrence: US)
  Receive Date: 20130114
  Receipt Date: 20130114
  Transmission Date: 20140127
  Serious: Yes (Other)
  Sender: FDA-Public Use
  Company Number: US-PFIZER INC-2013013309

PATIENT
  Sex: Male

DRUGS (2)
  1. TIKOSYN [Suspect]
     Indication: ATRIAL FIBRILLATION
     Dosage: 0.25 MG, UNK
  2. TIKOSYN [Suspect]
     Dosage: UNK

REACTIONS (2)
  - Wound [Unknown]
  - Staphylococcal infection [Unknown]
